FAERS Safety Report 8183538-3 (Version None)
Quarter: 2012Q1

REPORT INFORMATION
  Report Type: 
  Country: None (occurrence: None)
  Receive Date: 20120305
  Receipt Date: 20120222
  Transmission Date: 20120608
  Serious: Yes (Hospitalization, Other)
  Sender: FDA-Public Use
  Company Number: US-ELI_LILLY_AND_COMPANY-US201108000135

PATIENT
  Sex: Female
  Weight: 40.2 kg

DRUGS (22)
  1. PREDNISONE TAB [Concomitant]
  2. WELLBUTRIN [Concomitant]
     Indication: STRESS
     Dosage: 150 MG, BID
  3. PLAVIX [Concomitant]
     Indication: TRANSIENT ISCHAEMIC ATTACK
     Dosage: 75 MG, QD
  4. PLAQUENIL [Concomitant]
     Indication: RHEUMATOID ARTHRITIS
     Dosage: 200 MG, BID
  5. FORTEO [Suspect]
     Indication: OSTEOPOROSIS
     Dosage: 20 UG, QD
     Route: 065
  6. ACTONEL [Concomitant]
     Dosage: 35 MG, WEEKLY (1/W)
  7. VITAMIN D [Concomitant]
  8. FERGON [Concomitant]
     Dosage: UNK, PRN
  9. PROZAC [Concomitant]
     Indication: AFFECTIVE DISORDER
  10. ADVAIR DISKUS 100/50 [Concomitant]
  11. CALCIUM CARBONATE [Concomitant]
     Dosage: 120 MG, PRN
  12. XOPENEX [Concomitant]
  13. ALBUTEROL [Concomitant]
     Dosage: UNK, PRN
  14. LEVAQUIN [Concomitant]
     Dosage: 750 MG, QD
  15. TRAMADOL HCL [Concomitant]
     Dosage: 50 MG, PRN
  16. HYDROCODONE BITARTRATE [Concomitant]
  17. SPIRIVA [Concomitant]
     Indication: CHRONIC OBSTRUCTIVE PULMONARY DISEASE
  18. ACCUPRIL [Concomitant]
     Indication: HYPERTENSION
     Dosage: 40 MG, QD
  19. ESTRACE [Concomitant]
     Dosage: 2 MG, QD
  20. AMITRIPTYLINE HCL [Concomitant]
     Dosage: 100 MG, QD
  21. FORTEO [Suspect]
     Dosage: 20 UG, QD
     Route: 065
  22. NORVASC [Concomitant]
     Indication: HYPERTENSION
     Dosage: 10 MG, QD

REACTIONS (13)
  - ARTERY DISSECTION [None]
  - CEREBRAL ARTERIOSCLEROSIS [None]
  - INTRACRANIAL ANEURYSM [None]
  - CONSTIPATION [None]
  - MALAISE [None]
  - DECREASED APPETITE [None]
  - CHRONIC OBSTRUCTIVE PULMONARY DISEASE [None]
  - MUSCULOSKELETAL PAIN [None]
  - BONE DENSITY DECREASED [None]
  - HEADACHE [None]
  - CAROTID ARTERY STENOSIS [None]
  - WEIGHT DECREASED [None]
  - SURGERY [None]
